FAERS Safety Report 24770590 (Version 2)
Quarter: 2025Q1

REPORT INFORMATION
  Report Type: Spontaneous
  Country: US (occurrence: US)
  Receive Date: 20241224
  Receipt Date: 20250208
  Transmission Date: 20250409
  Serious: No
  Sender: CSL BEHRING
  Company Number: US-BEH-2024188669

PATIENT
  Age: 83 Year
  Sex: Male
  Weight: 88.45 kg

DRUGS (4)
  1. VELTASSA [Suspect]
     Active Substance: PATIROMER
     Route: 065
     Dates: start: 202412
  2. KERENDIA [Concomitant]
     Active Substance: FINERENONE
  3. MAGNESIUM OXIDE [Concomitant]
     Active Substance: MAGNESIUM OXIDE
  4. METOPROLOL [Concomitant]
     Active Substance: METOPROLOL

REACTIONS (2)
  - Renal pain [Unknown]
  - Diarrhoea [Unknown]
